FAERS Safety Report 19220962 (Version 1)
Quarter: 2021Q2

REPORT INFORMATION
  Report Type: Spontaneous
  Country: GB (occurrence: GB)
  Receive Date: 20210506
  Receipt Date: 20210506
  Transmission Date: 20210717
  Serious: Yes (Other)
  Sender: FDA-Public Use
  Company Number: NVSC2021GB097451

PATIENT
  Age: 29 Year
  Sex: Female

DRUGS (1)
  1. CIPROFLOXACIN. [Suspect]
     Active Substance: CIPROFLOXACIN
     Indication: PYELONEPHRITIS
     Dosage: 500 MG, BID
     Route: 048
     Dates: start: 20210419, end: 20210421

REACTIONS (1)
  - Lip blister [Unknown]

NARRATIVE: CASE EVENT DATE: 20210419
